FAERS Safety Report 16551004 (Version 1)
Quarter: 2019Q3

REPORT INFORMATION
  Report Type: Spontaneous
  Country: US (occurrence: US)
  Receive Date: 20190528
  Receipt Date: 20190528
  Transmission Date: 20191004
  Serious: Yes (Other)
  Sender: FDA-Public Use
  Company Number: None

PATIENT

DRUGS (2)
  1. DOXYCYCLINE HYCLATE (GENERIC FOR TARGADOX) 50MG TABS [Suspect]
     Active Substance: DOXYCYCLINE HYCLATE
     Indication: ACNE
     Dosage: ?          QUANTITY:50 MG MILLIGRAM(S);?
     Route: 048
     Dates: start: 20190320, end: 20190503
  2. KIRKLAND SIGNATURE ADULT MULTIVITAMIN GUMMIES [Concomitant]

REACTIONS (4)
  - Oropharyngeal pain [None]
  - Gastrooesophageal reflux disease [None]
  - Pharyngeal swelling [None]
  - Discomfort [None]

NARRATIVE: CASE EVENT DATE: 20190503
